FAERS Safety Report 6158124-7 (Version None)
Quarter: 2009Q2

REPORT INFORMATION
  Report Type: 
  Country: None (occurrence: None)
  Receive Date: 20090417
  Receipt Date: 20090408
  Transmission Date: 20091009
  Serious: Yes (Other)
  Sender: FDA-Public Use
  Company Number: FR-ROCHE-617299

PATIENT
  Sex: Male
  Weight: 70 kg

DRUGS (3)
  1. PEGASYS [Suspect]
     Indication: HEPATITIS C
     Dosage: DRUG REPORTED AS:PEGASYS 180
     Route: 058
     Dates: start: 20080220
  2. NEORECORMON [Suspect]
     Indication: DRUG USE FOR UNKNOWN INDICATION
     Dosage: DOSE 30000 IU
     Route: 058
     Dates: start: 20081027, end: 20081201
  3. COPEGUS [Suspect]
     Indication: HEPATITIS C
     Dosage: DRUG REPORTEDAS COPEGUS 200
     Route: 048
     Dates: start: 20080220

REACTIONS (2)
  - ANAEMIA [None]
  - PHLEBITIS [None]
